FAERS Safety Report 11423301 (Version 1)
Quarter: 2015Q3

REPORT INFORMATION
  Report Type: Report from Study
  Country: CA (occurrence: CA)
  Receive Date: 20150827
  Receipt Date: 20150827
  Transmission Date: 20151125
  Serious: Yes (Other)
  Sender: FDA-Public Use
  Company Number: CA-TAKEDA-2015MPI005691

PATIENT

DRUGS (1)
  1. VELCADE [Suspect]
     Active Substance: BORTEZOMIB
     Indication: MANTLE CELL LYMPHOMA
     Dosage: 3.5 MG, 2/WEEK
     Route: 065

REACTIONS (3)
  - Blood creatinine increased [Unknown]
  - Oral neoplasm [Recovering/Resolving]
  - Fatigue [Not Recovered/Not Resolved]
